FAERS Safety Report 6115171-9 (Version None)
Quarter: 2009Q1

REPORT INFORMATION
  Report Type: 
  Country: None (occurrence: None)
  Receive Date: 20090313
  Receipt Date: 20090309
  Transmission Date: 20090719
  Serious: Yes (Hospitalization)
  Sender: FDA-Public Use
  Company Number: FR-ASTRAZENECA-2009CG00483

PATIENT
  Age: 33 Year
  Sex: Male

DRUGS (4)
  1. NEXIUM [Suspect]
     Route: 048
     Dates: start: 20090201, end: 20090208
  2. SOLUPRED [Suspect]
     Route: 048
     Dates: start: 20090201, end: 20090208
  3. ALDACTONE [Concomitant]
     Dates: start: 20090201
  4. KALEORID [Concomitant]
     Dates: start: 20090201

REACTIONS (2)
  - DERMATITIS BULLOUS [None]
  - ERYTHEMA MULTIFORME [None]
